FAERS Safety Report 18433543 (Version 2)
Quarter: 2020Q4

REPORT INFORMATION
  Report Type: Spontaneous
  Country: RU (occurrence: RU)
  Receive Date: 20201028
  Receipt Date: 20201031
  Transmission Date: 20210114
  Serious: Yes (Death, Other)
  Sender: FDA-Public Use
  Company Number: RU-ABBVIE-20K-251-3623362-00

PATIENT
  Sex: Male

DRUGS (1)
  1. VENCLEXTA [Suspect]
     Active Substance: VENETOCLAX
     Indication: CHRONIC LYMPHOCYTIC LEUKAEMIA
     Route: 048

REACTIONS (4)
  - Neurological symptom [Unknown]
  - Chronic lymphocytic leukaemia [Fatal]
  - Central nervous system leukaemia [Fatal]
  - B-cell lymphoma [Unknown]

NARRATIVE: CASE EVENT DATE: 20201027
